FAERS Safety Report 8765707 (Version 1)
Quarter: 2012Q4

REPORT INFORMATION
  Report Type: 
  Country: US (occurrence: US)
  Receive Date: 20120904
  Receipt Date: 20120904
  Transmission Date: 20130627
  Serious: Yes (Hospitalization)
  Sender: FDA-Public Use
  Company Number: PHEH2012US017045

PATIENT
  Sex: Female

DRUGS (1)
  1. SANDOSTATIN [Suspect]
     Indication: CARCINOID TUMOUR

REACTIONS (14)
  - Small intestinal obstruction [Unknown]
  - Metastatic carcinoid tumour [Unknown]
  - Hypokalaemia [Unknown]
  - Hypomagnesaemia [Unknown]
  - Malnutrition [Unknown]
  - Accelerated hypertension [Unknown]
  - Anaemia of chronic disease [Unknown]
  - Diabetes mellitus [Unknown]
  - Hypothyroidism [Unknown]
  - Ulcer [Unknown]
  - Flatulence [Unknown]
  - Diarrhoea [Unknown]
  - Blood pressure systolic increased [Unknown]
  - Decubitus ulcer [None]
